FAERS Safety Report 23230124 (Version 1)
Quarter: 2023Q4

REPORT INFORMATION
  Report Type: Spontaneous
  Country: None (occurrence: US)
  Receive Date: 20231127
  Receipt Date: 20231127
  Transmission Date: 20240110
  Serious: No
  Sender: FDA-Public Use
  Company Number: US-Carma Laboratories -2148711

PATIENT
  Sex: Female

DRUGS (1)
  1. CARMEX CLASSIC LIP BALM MEDICATED [Suspect]
     Active Substance: CAMPHOR (SYNTHETIC)\PETROLATUM
     Route: 061
     Dates: start: 20231024

REACTIONS (1)
  - Lip swelling [Recovering/Resolving]

NARRATIVE: CASE EVENT DATE: 20231024
